FAERS Safety Report 8857022 (Version 1)
Quarter: 2012Q4

REPORT INFORMATION
  Report Type: 
  Country: US (occurrence: US)
  Receive Date: 20121023
  Receipt Date: 20121023
  Transmission Date: 20130627
  Serious: No
  Sender: FDA-Public Use
  Company Number: US-AMGEN-USASP2012055572

PATIENT
  Age: 58 Year
  Sex: Male

DRUGS (3)
  1. ENBREL [Suspect]
     Indication: ANKYLOSING SPONDYLITIS
     Dosage: 50 mg, qwk
     Route: 058
  2. SULINDAC [Concomitant]
     Dosage: 150 mg, UNK
  3. HYDROCODONE/APAP [Concomitant]
     Dosage: 5-500 mg

REACTIONS (1)
  - Ankylosing spondylitis [Unknown]
